FAERS Safety Report 7592333-5 (Version None)
Quarter: 2011Q3

REPORT INFORMATION
  Report Type: 
  Country: None (occurrence: None)
  Receive Date: 20110705
  Receipt Date: 20110705
  Transmission Date: 20111222
  Serious: Yes (Hospitalization)
  Sender: FDA-Public Use
  Company Number: None

PATIENT
  Age: 55 Year
  Sex: Female
  Weight: 79.3795 kg

DRUGS (2)
  1. BEPREVE [Suspect]
     Indication: MULTIPLE ALLERGIES
     Dosage: 1 DROP 2/DAY OPTHALMIC ONCE IN PM AND ONCE IN AM
     Route: 047
     Dates: start: 20110421, end: 20110422
  2. BEPREVE [Suspect]
     Indication: CONJUNCTIVITIS
     Dosage: 1 DROP 2/DAY OPTHALMIC ONCE IN PM AND ONCE IN AM
     Route: 047
     Dates: start: 20110421, end: 20110422

REACTIONS (4)
  - BLOOD PRESSURE INCREASED [None]
  - VISUAL ACUITY REDUCED TRANSIENTLY [None]
  - HEART RATE INCREASED [None]
  - MYDRIASIS [None]
